FAERS Safety Report 18328285 (Version 1)
Quarter: 2020Q3

REPORT INFORMATION
  Report Type: Spontaneous
  Country: US (occurrence: US)
  Receive Date: 20200930
  Receipt Date: 20200930
  Transmission Date: 20201103
  Serious: Yes (Other)
  Sender: FDA-Public Use
  Company Number: US-SA-2020SA266019

PATIENT

DRUGS (6)
  1. TRIAMCINOLONE [Concomitant]
     Active Substance: TRIAMCINOLONE
     Indication: ECZEMA
     Dosage: AS OFTEN AS 3 TIMES WEEKLY OVER MANY YEARS
     Route: 061
  2. PREDNISONE. [Concomitant]
     Active Substance: PREDNISONE
     Indication: RESTRICTIVE PULMONARY DISEASE
     Dosage: 60 MG, QD
  3. DUPILUMAB [Suspect]
     Active Substance: DUPILUMAB
     Indication: NEURODERMATITIS
     Dosage: 300 MG, QOW
     Route: 058
  4. PREDNISONE. [Concomitant]
     Active Substance: PREDNISONE
     Dosage: SLOWLY TAPERED OFF
  5. TRIAMCINOLONE [Concomitant]
     Active Substance: TRIAMCINOLONE
     Indication: NEURODERMATITIS
  6. DUPILUMAB [Suspect]
     Active Substance: DUPILUMAB
     Indication: ECZEMA
     Dosage: 600 MG, 1X (LOADING DOSE)
     Route: 058

REACTIONS (6)
  - Skin exfoliation [Unknown]
  - Disease progression [Unknown]
  - Skin plaque [Unknown]
  - Rash erythematous [Unknown]
  - Off label use [Unknown]
  - Cutaneous T-cell lymphoma [Unknown]
